FAERS Safety Report 13334688 (Version 3)
Quarter: 2017Q2

REPORT INFORMATION
  Report Type: Spontaneous
  Country: BR (occurrence: BR)
  Receive Date: 20170314
  Receipt Date: 20170407
  Transmission Date: 20170830
  Serious: Yes (Other)
  Sender: FDA-Public Use
  Company Number: BR-JNJFOC-20170309931

PATIENT
  Age: 35 Year
  Sex: Female

DRUGS (1)
  1. ORTHO EVRA [Suspect]
     Active Substance: ETHINYL ESTRADIOL\NORELGESTROMIN
     Indication: CONTRACEPTION
     Dosage: USED FOR MORE THAN 2 YEARS
     Route: 062

REACTIONS (6)
  - Ankylosing spondylitis [Unknown]
  - Product adhesion issue [Unknown]
  - Wrong technique in product usage process [Unknown]
  - Off label use [Unknown]
  - Product formulation issue [Unknown]
  - Underdose [Unknown]

NARRATIVE: CASE EVENT DATE: 20170307
